FAERS Safety Report 9868723 (Version 1)
Quarter: 2014Q1

REPORT INFORMATION
  Report Type: Spontaneous
  Country: US (occurrence: US)
  Receive Date: 20140204
  Receipt Date: 20140204
  Transmission Date: 20141002
  Serious: No
  Sender: FDA-Public Use
  Company Number: US-ENDO PHARMACEUTICALS INC.-METH20130008

PATIENT
  Age: 59 Year
  Sex: Female
  Weight: 70.82 kg

DRUGS (3)
  1. METHYLPREDNISOLONE [Suspect]
     Indication: BRONCHITIS
     Route: 048
     Dates: start: 20130227, end: 20130227
  2. DIAZEPAM 5MG [Concomitant]
     Indication: ANXIETY
     Dosage: UNKNOWN
     Route: 048
  3. MOEXIPRIL/HYDROCHLOROTHIAZIDE [Concomitant]
     Indication: PRODUCT USED FOR UNKNOWN INDICATION
     Dosage: 7.5/12.5 MG
     Route: 065
     Dates: start: 2009

REACTIONS (6)
  - Anxiety [Recovered/Resolved]
  - Feeling cold [Recovered/Resolved]
  - Cold sweat [Recovered/Resolved]
  - Nausea [Recovered/Resolved]
  - Pain in extremity [Recovered/Resolved]
  - Headache [Recovered/Resolved]
